FAERS Safety Report 17219872 (Version 3)
Quarter: 2020Q1

REPORT INFORMATION
  Report Type: Report from Study
  Country: US (occurrence: US)
  Receive Date: 20191231
  Receipt Date: 20200131
  Transmission Date: 20200409
  Serious: No
  Sender: FDA-Public Use
  Company Number: US-SA-2019SA359268

PATIENT
  Age: 4 Year
  Sex: Male

DRUGS (1)
  1. AGALSIDASE BETA [Suspect]
     Active Substance: AGALSIDASE BETA
     Indication: FABRY^S DISEASE
     Dosage: 15 DOSE/UNIT, QOW
     Route: 041
     Dates: start: 20190709

REACTIONS (2)
  - Neutralising antibodies positive [Not Recovered/Not Resolved]
  - Inhibiting antibodies positive [Not Recovered/Not Resolved]

NARRATIVE: CASE EVENT DATE: 20190920
